FAERS Safety Report 9746186 (Version 2)
Quarter: 2013Q4

REPORT INFORMATION
  Report Type: Spontaneous
  Country: US (occurrence: US)
  Receive Date: 20131211
  Receipt Date: 20131211
  Transmission Date: 20140711
  Serious: No
  Sender: FDA-Public Use
  Company Number: US-GILEAD-2009-0024637

PATIENT
  Sex: Male

DRUGS (2)
  1. ATRIPLA [Suspect]
  2. UROXATRAL [Suspect]
     Indication: POLLAKIURIA
     Route: 048
     Dates: start: 20091125

REACTIONS (4)
  - Micturition urgency [Recovering/Resolving]
  - Onychomycosis [Unknown]
  - Tinnitus [Unknown]
  - Rash [Recovered/Resolved]
